FAERS Safety Report 12565869 (Version 2)
Quarter: 2016Q3

REPORT INFORMATION
  Report Type: Report from Study
  Country: US (occurrence: US)
  Receive Date: 20160718
  Receipt Date: 20160819
  Transmission Date: 20161109
  Serious: Yes (Life-Threatening, Hospitalization, Other)
  Sender: FDA-Public Use
  Company Number: PHEH2016US017109

PATIENT
  Age: 76 Year
  Sex: Male
  Weight: 66.2 kg

DRUGS (10)
  1. ZAROXOLYN [Suspect]
     Active Substance: METOLAZONE
     Indication: WEIGHT INCREASED
     Dosage: 2.5 MG, QW, PRN (AS NEEDED)
     Route: 048
  2. PLAVIX [Concomitant]
     Active Substance: CLOPIDOGREL BISULFATE
     Indication: CORONARY ARTERY DISEASE
     Dosage: 75 MG, QD
     Route: 048
  3. RANEXA [Concomitant]
     Active Substance: RANOLAZINE
     Indication: CORONARY ARTERY DISEASE
     Dosage: 500 MG, BID
     Route: 048
  4. TORSEMIDE. [Suspect]
     Active Substance: TORSEMIDE
     Indication: LEFT VENTRICULAR FAILURE
     Dosage: 40 MG, BID
     Route: 048
  5. DIGOXIN. [Concomitant]
     Active Substance: DIGOXIN
     Indication: LEFT VENTRICULAR FAILURE
     Dosage: 125 MG, QD
     Route: 048
  6. COREG [Concomitant]
     Active Substance: CARVEDILOL
     Indication: LEFT VENTRICULAR FAILURE
     Dosage: 12.5 MG, BID
     Route: 048
  7. ZAROXOLYN [Suspect]
     Active Substance: METOLAZONE
     Indication: LEFT VENTRICULAR FAILURE
  8. SYNTHROID [Concomitant]
     Active Substance: LEVOTHYROXINE SODIUM
     Indication: HYPOTHYROIDISM
     Dosage: 175 UG, QD
     Route: 048
  9. ENTRESTO [Suspect]
     Active Substance: SACUBITRIL\VALSARTAN
     Indication: LEFT VENTRICULAR FAILURE
     Dosage: 50 MG, BID
     Route: 048
     Dates: start: 201601
  10. ALDACTONE [Concomitant]
     Active Substance: SPIRONOLACTONE
     Indication: LEFT VENTRICULAR FAILURE
     Dosage: 25 MG, QD
     Route: 048

REACTIONS (15)
  - Loss of consciousness [Recovering/Resolving]
  - Cardio-respiratory distress [Unknown]
  - White blood cell count increased [Unknown]
  - Device malfunction [Recovering/Resolving]
  - Arrhythmia [Unknown]
  - Brain natriuretic peptide increased [Unknown]
  - Hypokalaemia [Recovering/Resolving]
  - Dehydration [Recovering/Resolving]
  - Pleural effusion [Unknown]
  - Pneumonia [Unknown]
  - Blood chloride decreased [Unknown]
  - Ventricular tachycardia [Recovering/Resolving]
  - Urinary tract infection [Unknown]
  - Dizziness [Recovering/Resolving]
  - Blood sodium decreased [Unknown]

NARRATIVE: CASE EVENT DATE: 20160612
